FAERS Safety Report 5994987-3 (Version None)
Quarter: 2008Q4

REPORT INFORMATION
  Report Type: 
  Country: None (occurrence: None)
  Receive Date: 20081209
  Receipt Date: 20081125
  Transmission Date: 20090506
  Serious: No
  Sender: FDA-Public Use
  Company Number: 002#2#2008-00642

PATIENT
  Sex: Male

DRUGS (1)
  1. NEUPRO [Suspect]
     Indication: DRUG USE FOR UNKNOWN INDICATION
     Dosage: MG/24H,TRANSDERMAL
     Route: 062

REACTIONS (3)
  - ABDOMINAL PAIN UPPER [None]
  - PARKINSON'S DISEASE [None]
  - WEIGHT DECREASED [None]
